FAERS Safety Report 4516910-0 (Version None)
Quarter: 2005Q1

REPORT INFORMATION
  Report Type: 
  Country: None (occurrence: None)
  Receive Date: 20041029
  Receipt Date: 20040914
  Transmission Date: 20050727
  Serious: No
  Sender: FDA-Public Use
  Company Number: 2004-120372-NL

PATIENT
  Age: 20 Year
  Sex: Female
  Weight: 68.2 kg

DRUGS (2)
  1. NUVARING [Suspect]
     Indication: CONTRACEPTION
     Dosage: DF DAILY VAGINAL
     Route: 067
     Dates: start: 20040101
  2. MULTI-VITAMINS [Concomitant]

REACTIONS (6)
  - GENITAL PRURITUS FEMALE [None]
  - MEDICAL DEVICE DISCOMFORT [None]
  - OLIGOMENORRHOEA [None]
  - RASH PAPULAR [None]
  - VAGINAL HAEMORRHAGE [None]
  - WEIGHT INCREASED [None]
